FAERS Safety Report 22617303 (Version 8)
Quarter: 2024Q2

REPORT INFORMATION
  Report Type: Report from Study
  Country: US (occurrence: US)
  Receive Date: 20230620
  Receipt Date: 20240610
  Transmission Date: 20240716
  Serious: Yes (Hospitalization, Other)
  Sender: FDA-Public Use
  Company Number: US-ACADIA PHARMACEUTICALS INC.-ACA-2023-TRF-002085

PATIENT
  Age: 27 Year
  Sex: Female

DRUGS (8)
  1. DAYBUE [Suspect]
     Active Substance: TROFINETIDE
     Indication: Rett syndrome
     Dosage: 60 MILLILITER, BID
     Route: 048
     Dates: start: 20230515
  2. DAYBUE [Suspect]
     Active Substance: TROFINETIDE
     Dosage: 60 MILLILITER, BID
     Route: 048
     Dates: end: 20230929
  3. DAYBUE [Suspect]
     Active Substance: TROFINETIDE
     Dosage: UNKNOWN
  4. DAYBUE [Suspect]
     Active Substance: TROFINETIDE
     Dosage: 60 MILLILITER BID
  5. FAMOTIDINE [Concomitant]
     Active Substance: FAMOTIDINE
  6. ALBUTEROL [Concomitant]
     Active Substance: ALBUTEROL
  7. TOPAMAX [Concomitant]
     Active Substance: TOPIRAMATE
  8. IBUPROFEN [Concomitant]
     Active Substance: IBUPROFEN

REACTIONS (13)
  - Blood pressure increased [Unknown]
  - Anaesthetic complication [Unknown]
  - Ileus [Unknown]
  - Pneumonia aspiration [Unknown]
  - Nephrolithiasis [Unknown]
  - Uterine operation [Unknown]
  - Product dose omission issue [Recovered/Resolved]
  - Urinary tract infection [Unknown]
  - Constipation [Not Recovered/Not Resolved]
  - Drug ineffective [Unknown]
  - Diarrhoea [Recovered/Resolved]
  - Diarrhoea [Recovered/Resolved]
  - Decreased appetite [Unknown]

NARRATIVE: CASE EVENT DATE: 20230602
